FAERS Safety Report 9363716 (Version 1)
Quarter: 2013Q2

REPORT INFORMATION
  Report Type: Spontaneous
  Country: US (occurrence: None)
  Receive Date: 20130618
  Receipt Date: 20130618
  Transmission Date: 20140414
  Serious: Yes (Hospitalization, Other)
  Sender: FDA-Public Use
  Company Number: DSU-2013-03596

PATIENT
  Age: 54 Year
  Sex: Female
  Weight: 136.08 kg

DRUGS (1)
  1. BENICAR HCT [Suspect]
     Indication: HYPERTENSION
     Route: 048
     Dates: start: 2010

REACTIONS (11)
  - Weight increased [None]
  - Heart rate increased [None]
  - Somnolence [None]
  - Nausea [None]
  - Acne [None]
  - Road traffic accident [None]
  - Urinary tract disorder [None]
  - Confusional state [None]
  - Gastroenteritis viral [None]
  - Dry mouth [None]
  - Chapped lips [None]
